FAERS Safety Report 5610773-8 (Version None)
Quarter: 2008Q1

REPORT INFORMATION
  Report Type: 
  Country: None (occurrence: None)
  Receive Date: 20080201
  Receipt Date: 20080125
  Transmission Date: 20080703
  Serious: Yes (Death)
  Sender: FDA-Public Use
  Company Number: JP-BRISTOL-MYERS SQUIBB COMPANY-14060941

PATIENT
  Age: 64 Year
  Sex: Female

DRUGS (3)
  1. ENDOXAN [Suspect]
     Indication: BREAST CANCER
     Dosage: FREQUENCY: DAY 1-14
     Route: 065
     Dates: start: 20030101
  2. EPIRUBICIN HCL [Suspect]
     Indication: BREAST CANCER
     Dosage: FREQUENCY: DAY 1 AND 8
     Route: 065
     Dates: start: 20030101
  3. FLUOROURACIL [Suspect]
     Indication: BREAST CANCER
     Dosage: FREQUENCY: DAY 1 AND 8
     Route: 065
     Dates: start: 20030101

REACTIONS (1)
  - LEUKAEMIA [None]
